APPROVED DRUG PRODUCT: HYDROCORTISONE
Active Ingredient: HYDROCORTISONE
Strength: 10MG
Dosage Form/Route: TABLET;ORAL
Application: A083365 | Product #003
Applicant: HIKMA INTERNATIONAL PHARMACEUTICALS LLC
Approved: Feb 23, 2015 | RLD: No | RS: No | Type: DISCN